FAERS Safety Report 8372998-0 (Version None)
Quarter: 2012Q2

REPORT INFORMATION
  Report Type: 
  Country: None (occurrence: None)
  Receive Date: 20120521
  Receipt Date: 20110919
  Transmission Date: 20120825
  Serious: No
  Sender: FDA-Public Use
  Company Number: US-ASTRAZENECA-2011SE64329

PATIENT
  Sex: Female

DRUGS (3)
  1. EVISTA [Concomitant]
     Dosage: UNKNOWN
  2. PRILOSEC OTC [Suspect]
     Route: 048
     Dates: start: 20110913, end: 20110919
  3. LEVOXYL [Concomitant]
     Dosage: UNKNOWN

REACTIONS (3)
  - ABDOMINAL DISTENSION [None]
  - MUSCULOSKELETAL CHEST PAIN [None]
  - FLATULENCE [None]
